FAERS Safety Report 5904039-6 (Version None)
Quarter: 2008Q3

REPORT INFORMATION
  Report Type: 
  Country: None (occurrence: None)
  Receive Date: 20080919
  Receipt Date: 20080728
  Transmission Date: 20090109
  Serious: No
  Sender: FDA-Public Use
  Company Number: US-WYE-H05291308

PATIENT
  Age: 66 Year
  Sex: Female

DRUGS (1)
  1. PRISTIQ [Suspect]
     Indication: PAIN
     Dosage: 50 MG 1X PER 1 DAY, ORAL
     Route: 048
     Dates: start: 20080528

REACTIONS (2)
  - NAUSEA [None]
  - WEIGHT DECREASED [None]
